FAERS Safety Report 8280002-8 (Version None)
Quarter: 2012Q2

REPORT INFORMATION
  Report Type: 
  Country: None (occurrence: None)
  Receive Date: 20120412
  Receipt Date: 20110823
  Transmission Date: 20120825
  Serious: No
  Sender: FDA-Public Use
  Company Number: US-ASTRAZENECA-2011SE41399

PATIENT
  Age: 68 Year
  Sex: Female
  Weight: 96.6 kg

DRUGS (4)
  1. NEXIUM [Suspect]
     Route: 048
  2. ADVAIR DISKUS 100/50 [Concomitant]
  3. NEXIUM [Suspect]
     Indication: GASTROOESOPHAGEAL REFLUX DISEASE
     Route: 048
  4. NEXIUM [Suspect]
     Route: 048

REACTIONS (5)
  - GASTROOESOPHAGEAL REFLUX DISEASE [None]
  - BRONCHITIS [None]
  - DYSPNOEA [None]
  - CHEST DISCOMFORT [None]
  - DRUG INEFFECTIVE [None]
